FAERS Safety Report 8771560 (Version 4)
Quarter: 2012Q4

REPORT INFORMATION
  Report Type: 
  Country: JP (occurrence: JP)
  Receive Date: 20120905
  Receipt Date: 20121019
  Transmission Date: 20130627
  Serious: Yes (Hospitalization, Other)
  Sender: FDA-Public Use
  Company Number: PHHY2012JP058844

PATIENT
  Age: 64 Year
  Sex: Male

DRUGS (7)
  1. CERTICAN [Suspect]
     Indication: RENAL TRANSPLANT
     Dosage: 3 mg, UNK
     Route: 048
     Dates: start: 20120409, end: 201204
  2. CERTICAN [Suspect]
     Dosage: 1.5 mg, UNK
     Route: 048
     Dates: start: 20120417, end: 20120424
  3. TACROLIMUS [Concomitant]
     Indication: RENAL TRANSPLANT
  4. NEORAL [Concomitant]
     Indication: RENAL TRANSPLANT
     Dosage: 100 mg, UNK
     Route: 048
  5. NEORAL [Concomitant]
     Dosage: 50 mg, UNK
     Route: 048
     Dates: start: 20120425
  6. TACROLIMUS [Concomitant]
     Indication: RENAL TRANSPLANT
     Dosage: 9.5 mg, UNK
     Route: 048
     Dates: start: 20120409, end: 20120422
  7. STEROIDS NOS [Concomitant]

REACTIONS (3)
  - Gastrointestinal haemorrhage [Recovered/Resolved]
  - Nephropathy toxic [Unknown]
  - Proteinuria [Unknown]
